FAERS Safety Report 16179191 (Version 1)
Quarter: 2019Q2

REPORT INFORMATION
  Report Type: Spontaneous
  Country: BE (occurrence: BE)
  Receive Date: 20190410
  Receipt Date: 20190410
  Transmission Date: 20190711
  Serious: Yes (Hospitalization)
  Sender: FDA-Public Use
  Company Number: BE-BAXTER-2019BAX005119

PATIENT
  Age: 63 Year
  Sex: Male

DRUGS (6)
  1. CARBOPLATIN. [Suspect]
     Active Substance: CARBOPLATIN
     Indication: SQUAMOUS CELL CARCINOMA OF SKIN
     Route: 065
     Dates: start: 20190215, end: 20190215
  2. BISOPROLOL [Concomitant]
     Active Substance: BISOPROLOL
     Indication: PRODUCT USED FOR UNKNOWN INDICATION
     Route: 065
  3. UROMITEXAN 400MG/4ML, SOLUTION INJECTABLE [Suspect]
     Active Substance: MESNA
     Indication: SQUAMOUS CELL CARCINOMA OF SKIN
     Route: 065
     Dates: start: 20190215, end: 20190215
  4. HOLOXAN [Suspect]
     Active Substance: IFOSFAMIDE
     Indication: SQUAMOUS CELL CARCINOMA OF SKIN
     Dosage: TREATMENT OF CHEMOTHERAPY SCHEDULE EVERY 3 WEEKS DAY 1: PACLITAXEL/CARBOPLATIN/IFOSFAMIDE (+ UROMITE
     Route: 042
     Dates: start: 20190215, end: 20190216
  5. PACLITAXEL. [Suspect]
     Active Substance: PACLITAXEL
     Indication: SQUAMOUS CELL CARCINOMA OF SKIN
     Route: 065
     Dates: start: 20190215, end: 20190215
  6. XARELTO [Concomitant]
     Active Substance: RIVAROXABAN
     Indication: PRODUCT USED FOR UNKNOWN INDICATION
     Route: 065

REACTIONS (1)
  - Encephalopathy [Recovered/Resolved]

NARRATIVE: CASE EVENT DATE: 20190217
